FAERS Safety Report 9321153 (Version 1)
Quarter: 2013Q2

REPORT INFORMATION
  Report Type: Spontaneous
  Country: BE (occurrence: BE)
  Receive Date: 20130531
  Receipt Date: 20130531
  Transmission Date: 20140414
  Serious: Yes (Other)
  Sender: FDA-Public Use
  Company Number: BE-JNJFOC-20130405217

PATIENT
  Age: 23 Year
  Sex: Female
  Weight: 59 kg

DRUGS (8)
  1. REMICADE [Suspect]
     Indication: CROHN^S DISEASE
     Dosage: TOTAL NUMBER OF INFUSIONS 17
     Route: 042
     Dates: start: 20110812
  2. REMICADE [Suspect]
     Indication: CROHN^S DISEASE
     Dosage: APPROXIMATE TOTAL NUMBER OF INFUSIONS: 17
     Route: 042
     Dates: start: 20130408
  3. IMURAN [Concomitant]
     Route: 065
  4. AZATHIOPRINE [Concomitant]
     Indication: CROHN^S DISEASE
     Route: 065
     Dates: start: 20080102
  5. SOLUCORTEF [Concomitant]
     Indication: PREMEDICATION
     Route: 042
     Dates: start: 20130408
  6. ZYRTEC [Concomitant]
     Indication: PREMEDICATION
     Dosage: ONE
     Route: 048
     Dates: start: 20130408
  7. YASMIN [Concomitant]
     Indication: CONTRACEPTION
     Route: 065
  8. CETRIZINE [Concomitant]
     Indication: PREMEDICATION
     Route: 048
     Dates: start: 20130408

REACTIONS (8)
  - Palpitations [Recovered/Resolved]
  - Hypotension [Recovered/Resolved]
  - Infusion related reaction [Recovered/Resolved]
  - Tachycardia [Recovered/Resolved]
  - Hyperhidrosis [Recovered/Resolved]
  - Abdominal pain [Recovered/Resolved]
  - Diarrhoea [Recovered/Resolved]
  - Nausea [Recovered/Resolved]
